FAERS Safety Report 23502206 (Version 1)
Quarter: 2024Q1

REPORT INFORMATION
  Report Type: Spontaneous
  Country: BR (occurrence: BR)
  Receive Date: 20240208
  Receipt Date: 20240208
  Transmission Date: 20240409
  Serious: Yes (Hospitalization, Other)
  Sender: FDA-Public Use
  Company Number: BR-SA-SAC20240207000091

PATIENT
  Age: 9 Month
  Sex: Male
  Weight: 10.41 kg

DRUGS (1)
  1. SABRIL [Suspect]
     Active Substance: VIGABATRIN
     Indication: Hyperglycaemia
     Dosage: UNK UNK, BID (1 TABLET IN THE MORNING AND HALF AT NIGHT)
     Route: 065
     Dates: start: 2023

REACTIONS (4)
  - Seizure [Not Recovered/Not Resolved]
  - Reflexes abnormal [Not Recovered/Not Resolved]
  - Vomiting [Not Recovered/Not Resolved]
  - Drug ineffective for unapproved indication [Unknown]

NARRATIVE: CASE EVENT DATE: 20230101
